FAERS Safety Report 17346946 (Version 3)
Quarter: 2020Q1

REPORT INFORMATION
  Report Type: Report from Study
  Country: US (occurrence: US)
  Receive Date: 20200130
  Receipt Date: 20200302
  Transmission Date: 20200409
  Serious: Yes (Hospitalization)
  Sender: FDA-Public Use
  Company Number: US-ROCHE-2533363

PATIENT
  Age: 76 Year
  Sex: Female
  Weight: 57.9 kg

DRUGS (2)
  1. SODIUM CHLORIDE. [Concomitant]
     Active Substance: SODIUM CHLORIDE
     Route: 065
  2. TRASTUZUMAB EMTANSINE [Suspect]
     Active Substance: ADO-TRASTUZUMAB EMTANSINE
     Indication: HER-2 POSITIVE BREAST CANCER
     Dosage: DATE OF MOST RECENT DOSE OF SUSPECT PRIOR TO EVENT ONSET: 09/DEC/2019
     Route: 042
     Dates: start: 20190605

REACTIONS (7)
  - Cellulitis [Unknown]
  - Hyperglycaemia [Unknown]
  - Staphylococcal bacteraemia [Unknown]
  - Systemic inflammatory response syndrome [Unknown]
  - Hyponatraemia [Unknown]
  - Pyrexia [Recovered/Resolved]
  - Anaemia [Unknown]

NARRATIVE: CASE EVENT DATE: 20191212
